FAERS Safety Report 12860019 (Version 1)
Quarter: 2016Q4

REPORT INFORMATION
  Report Type: Spontaneous
  Country: GR (occurrence: GR)
  Receive Date: 20161019
  Receipt Date: 20161019
  Transmission Date: 20170207
  Serious: Yes (Other)
  Sender: FDA-Public Use
  Company Number: GR-GLAXOSMITHKLINE-GR2016GSK151769

PATIENT
  Sex: Female

DRUGS (4)
  1. MEGA-CALCIUM SANDOZ (CALCIUM CARB+CALCIUM LACTATE GLUCONATE) [Suspect]
     Active Substance: CALCIUM CARBONATE\CALCIUM LACTATE GLUCONATE
     Indication: OSTEOPOROSIS
     Dosage: UNK, ONCE EVERY MORNING
  2. CHOLECALCIFEROL [Suspect]
     Active Substance: CHOLECALCIFEROL
     Indication: OSTEOPOROSIS
     Dosage: UNK, 5 DROPS EVERY MORNING
  3. PROPAFENONE HCL [Suspect]
     Active Substance: PROPAFENONE HYDROCHLORIDE
     Indication: OSTEOPOROSIS
     Dosage: UNK
  4. SYSTANE BALANCE [Suspect]
     Active Substance: PROPYLENE GLYCOL
     Indication: PRODUCT USED FOR UNKNOWN INDICATION
     Dosage: UNK
     Dates: start: 20160531, end: 20160531

REACTIONS (4)
  - Activities of daily living impaired [None]
  - Dizziness [Unknown]
  - Tinnitus [Unknown]
  - Impaired work ability [Unknown]
